FAERS Safety Report 9799062 (Version 1)
Quarter: 2014Q1

REPORT INFORMATION
  Report Type: Spontaneous
  Country: FR (occurrence: None)
  Receive Date: 20140102
  Receipt Date: 20140102
  Transmission Date: 20141002
  Serious: Yes (Hospitalization)
  Sender: FDA-Public Use
  Company Number: SYM-2013-14380

PATIENT
  Age: 80 Year
  Sex: Female

DRUGS (6)
  1. FLAGYL (METRONIDAZOLE) (METRONIDAZOLE) [Suspect]
     Indication: PRODUCT USED FOR UNKNOWN INDICATION
     Dosage: 3 DOSAGE FORMS, DAILY, ORAL
     Route: 048
     Dates: start: 20131101, end: 20131104
  2. ROCEPHINE [Suspect]
     Indication: PRODUCT USED FOR UNKNOWN INDICATION
     Dates: start: 20131101, end: 20131104
  3. COTAREG (CO-DIOVAN) (HYDROCHLOROTHIAZIDE, VALSARTAN) [Concomitant]
  4. SYMBICORT (BUDESONIDE W / FORMOTEROL FUMARATE) (FORMOTEROL FUMARATE, BUDESONIDE) [Concomitant]
  5. STAGID (METFORMIN EMBONATE) (METFORMIN EMBONATE) [Concomitant]
  6. INEXIUM (ESOMEPRAZOLE MAGNESIUM) (ESOMEPRAZOLE MAGNESIUM) [Concomitant]

REACTIONS (8)
  - Rash maculo-papular [None]
  - Pyrexia [None]
  - Cholecystitis acute [None]
  - Renal failure acute [None]
  - Cardiac failure [None]
  - Pulmonary oedema [None]
  - Respiratory distress [None]
  - Pneumonia [None]
